FAERS Safety Report 10206457 (Version 1)
Quarter: 2014Q2

REPORT INFORMATION
  Report Type: Spontaneous
  Country: FR (occurrence: FR)
  Receive Date: 20140530
  Receipt Date: 20140530
  Transmission Date: 20141212
  Serious: Yes (Other)
  Sender: FDA-Public Use
  Company Number: PHHY2014FR065960

PATIENT
  Age: 68 Year
  Sex: Male

DRUGS (4)
  1. TASIGNA [Suspect]
     Indication: GASTROINTESTINAL STROMAL TUMOUR
     Dosage: 300 MG, PER DAY
     Dates: start: 201302, end: 20140526
  2. TASIGNA [Suspect]
     Indication: OFF LABEL USE
  3. MORPHINE [Concomitant]
     Indication: PAIN
     Dosage: UNK, IF NEEDED
  4. ANTIHYPERTENSIVES [Concomitant]
     Indication: HYPERTENSION

REACTIONS (2)
  - Coronary artery stenosis [Recovered/Resolved]
  - Chest pain [Recovered/Resolved]
